FAERS Safety Report 5100809-5 (Version None)
Quarter: 2006Q3

REPORT INFORMATION
  Report Type: 
  Country: None (occurrence: None)
  Receive Date: 20060906
  Receipt Date: 20060821
  Transmission Date: 20061208
  Serious: Yes (Death)
  Sender: FDA-Public Use
  Company Number: 8018612

PATIENT
  Age: 66 Year
  Sex: Male

DRUGS (4)
  1. PREDNISOLONE [Suspect]
  2. CYCLOPHOSPHAMIDE [Suspect]
  3. RITUXIMAB [Suspect]
  4. VINCRISTINE [Suspect]

REACTIONS (4)
  - DRUG INEFFECTIVE [None]
  - HEPATIC FUNCTION ABNORMAL [None]
  - LIVER DISORDER [None]
  - NEOPLASM RECURRENCE [None]
